FAERS Safety Report 17248063 (Version 1)
Quarter: 2020Q1

REPORT INFORMATION
  Report Type: Spontaneous
  Country: US (occurrence: US)
  Receive Date: 20200108
  Receipt Date: 20200108
  Transmission Date: 20200409
  Serious: No
  Sender: FDA-Public Use
  Company Number: US-SA-2020SA005088

PATIENT
  Sex: Female

DRUGS (10)
  1. ALOE EXTRACT [ALOE VERA EXTRACT] [Concomitant]
  2. ASPIRINE 325 MG [Concomitant]
  3. JOINT SUPPORT FORMULA [Concomitant]
  4. MEMORY [Concomitant]
  5. VITAMIN D3 [Concomitant]
     Active Substance: CHOLECALCIFEROL
  6. VITAMINS NOS [Concomitant]
     Active Substance: VITAMINS
  7. PRALUENT [Suspect]
     Active Substance: ALIROCUMAB
     Indication: TYPE IIA HYPERLIPIDAEMIA
     Dosage: 150 MG, QOW
     Route: 058
  8. ESTROGEN NOS;METHYLTESTOSTERONE [Concomitant]
  9. DHEA [Concomitant]
     Active Substance: PRASTERONE
  10. PROGESTERONE. [Concomitant]
     Active Substance: PROGESTERONE

REACTIONS (2)
  - Back pain [Unknown]
  - Muscle spasms [Unknown]
